FAERS Safety Report 5856615-7 (Version None)
Quarter: 2008Q3

REPORT INFORMATION
  Report Type: 
  Country: None (occurrence: None)
  Receive Date: 20080825
  Receipt Date: 20071031
  Transmission Date: 20090109
  Serious: No
  Sender: FDA-Public Use
  Company Number: US-ASTRAZENECA-2007UW22567

PATIENT
  Age: 801 Month
  Sex: Female
  Weight: 70.3 kg

DRUGS (10)
  1. IRESSA [Suspect]
     Indication: NON-SMALL CELL LUNG CANCER
     Route: 048
     Dates: start: 20020301
  2. SEREVENT [Concomitant]
  3. SPIRIVA [Concomitant]
     Indication: CHRONIC OBSTRUCTIVE PULMONARY DISEASE
  4. DEPAKOTE [Concomitant]
     Indication: BIPOLAR DISORDER
  5. LORATADINE [Concomitant]
  6. COUMADIN [Concomitant]
  7. CALCIUM CITRATE [Concomitant]
  8. GLUCOSAMINE [Concomitant]
  9. ALLREX [Concomitant]
  10. SYSTANE EYE DROPS [Concomitant]

REACTIONS (2)
  - NAIL DISORDER [None]
  - PARONYCHIA [None]
